FAERS Safety Report 9494431 (Version 1)
Quarter: 2013Q3

REPORT INFORMATION
  Report Type: Report from Study
  Country: BR (occurrence: BR)
  Receive Date: 20130903
  Receipt Date: 20130903
  Transmission Date: 20140515
  Serious: Yes (Hospitalization, Other)
  Sender: FDA-Public Use
  Company Number: PHHY2013BR094277

PATIENT
  Sex: Male

DRUGS (3)
  1. GALVUS [Suspect]
     Indication: DIABETES MELLITUS INADEQUATE CONTROL
     Dosage: 1 DF (50MG VILD), PER DAY
  2. SIMVASTATIN [Suspect]
     Dosage: 1 DF, AT NIGHT
  3. OMEPRAZOLE [Suspect]
     Dosage: 1 DF, IN FASTING

REACTIONS (2)
  - Cerebrovascular accident [Recovering/Resolving]
  - Speech disorder [Recovering/Resolving]
